FAERS Safety Report 13759817 (Version 1)
Quarter: 2017Q3

REPORT INFORMATION
  Report Type: Spontaneous
  Country: US (occurrence: US)
  Receive Date: 20170717
  Receipt Date: 20170717
  Transmission Date: 20171127
  Serious: No
  Sender: FDA-Public Use
  Company Number: US-B.I. PHARMACEUTICALS,INC./RIDGEFIELD-2017-BI-038922

PATIENT
  Age: 71 Year
  Sex: Female
  Weight: 51.71 kg

DRUGS (11)
  1. VITAMIN B12 [Concomitant]
     Active Substance: CYANOCOBALAMIN
     Indication: PRODUCT USED FOR UNKNOWN INDICATION
     Route: 065
  2. OFEV [Suspect]
     Active Substance: NINTEDANIB
     Dosage: UNIT DOSE: 100MG IN THE MORNING AND 150MG IN THE EVENING
     Route: 048
  3. ACYCLOVIR. [Concomitant]
     Active Substance: ACYCLOVIR
     Indication: ORAL HERPES
     Route: 065
  4. DILTIAZEM. [Concomitant]
     Active Substance: DILTIAZEM
     Indication: HEART RATE INCREASED
     Route: 065
     Dates: start: 20170508
  5. DIGOXIN. [Concomitant]
     Active Substance: DIGOXIN
     Indication: HEART RATE INCREASED
     Route: 065
     Dates: start: 20170508
  6. ZANTAC [Concomitant]
     Active Substance: RANITIDINE HYDROCHLORIDE
     Indication: HIATUS HERNIA
     Route: 065
  7. MULTIVITAMIN [Concomitant]
     Active Substance: VITAMINS
     Indication: PRODUCT USED FOR UNKNOWN INDICATION
     Route: 065
  8. EVISTA [Concomitant]
     Active Substance: RALOXIFENE HYDROCHLORIDE
     Indication: BONE DISORDER
     Route: 065
  9. PANTOPRAZOLE [Concomitant]
     Active Substance: PANTOPRAZOLE
     Indication: HIATUS HERNIA
     Route: 065
  10. OFEV [Suspect]
     Active Substance: NINTEDANIB
     Indication: IDIOPATHIC PULMONARY FIBROSIS
     Route: 048
  11. FEXOFENADINE [Concomitant]
     Active Substance: FEXOFENADINE\FEXOFENADINE HYDROCHLORIDE
     Indication: MULTIPLE ALLERGIES
     Route: 065

REACTIONS (5)
  - Nausea [Recovered/Resolved]
  - Vomiting [Recovered/Resolved]
  - Diarrhoea [Unknown]
  - Constipation [Not Recovered/Not Resolved]
  - Weight decreased [Unknown]

NARRATIVE: CASE EVENT DATE: 20170514
